FAERS Safety Report 14490290 (Version 1)
Quarter: 2018Q1

REPORT INFORMATION
  Report Type: Report from Study
  Country: None (occurrence: CA)
  Receive Date: 20180206
  Receipt Date: 20180206
  Transmission Date: 20180509
  Serious: Yes (Hospitalization, Other)
  Sender: FDA-Public Use
  Company Number: CA-ABBVIE-18K-028-2245061-00

PATIENT
  Age: 42 Year
  Sex: Male

DRUGS (1)
  1. HUMIRA [Suspect]
     Active Substance: ADALIMUMAB
     Indication: CROHN^S DISEASE
     Route: 058
     Dates: start: 20131205, end: 20171212

REACTIONS (4)
  - Abdominal pain [Unknown]
  - Intestinal obstruction [Recovered/Resolved]
  - Stress [Unknown]
  - Appendix disorder [Recovered/Resolved]

NARRATIVE: CASE EVENT DATE: 201712
